FAERS Safety Report 8609358-0 (Version None)
Quarter: 2012Q3

REPORT INFORMATION
  Report Type: 
  Country: None (occurrence: None)
  Receive Date: 20120821
  Receipt Date: 20120813
  Transmission Date: 20120928
  Serious: Yes (Other)
  Sender: FDA-Public Use
  Company Number: US-US-EMD SERONO, INC.-7154713

PATIENT
  Sex: Female

DRUGS (2)
  1. REBIF [Suspect]
     Indication: PRODUCT USED FOR UNKNOWN INDICATION
     Route: 058
     Dates: start: 20061023
  2. TYLENOL [Concomitant]
     Indication: PREMEDICATION

REACTIONS (4)
  - RENAL IMPAIRMENT [None]
  - INJECTION SITE ERYTHEMA [None]
  - CARTILAGE ATROPHY [None]
  - INJECTION SITE PAIN [None]
